FAERS Safety Report 9136424 (Version 1)
Quarter: 2013Q1

REPORT INFORMATION
  Report Type: Spontaneous
  Country: US (occurrence: US)
  Receive Date: 20130304
  Receipt Date: 20130304
  Transmission Date: 20140127
  Serious: No
  Sender: FDA-Public Use
  Company Number: US-ABBOTT-12P-163-0997696-00

PATIENT
  Age: 56 None
  Sex: Male

DRUGS (19)
  1. ANDROGEL [Suspect]
     Indication: BLOOD TESTOSTERONE DECREASED
     Dosage: 1 PACKET, ONCE DAILY
     Route: 061
     Dates: start: 201208, end: 20121004
  2. ANDROGEL [Suspect]
     Dosage: 5 GM (PACKET), EVERY OTHER DAY
     Route: 061
     Dates: start: 20121004
  3. GABAPENTIN [Concomitant]
     Indication: NEURALGIA
     Dosage: UNKNOWN
  4. LEVETIRACETAM [Concomitant]
     Indication: MUSCLE SPASMS
     Dosage: UNKNOWN
  5. ALLER-CHLOR [Concomitant]
     Indication: SEASONAL ALLERGY
     Dosage: UNKNOWN
  6. FLURBIPROFEN [Concomitant]
     Indication: ARTHRALGIA
     Dosage: UNKNOWN
  7. AMBIEN CR [Concomitant]
     Indication: INSOMNIA
     Dosage: UNKNOWN
  8. TRAZODONE [Concomitant]
     Indication: INSOMNIA
     Dosage: UNKNOWN
  9. CYMBALTA [Concomitant]
     Indication: DEPRESSION
     Dosage: UNKNOWN
  10. SIMVASTATIN [Concomitant]
     Indication: BLOOD CHOLESTEROL INCREASED
     Dosage: UNKNOWN
  11. KLONOPIN [Concomitant]
     Indication: ANXIETY
     Dosage: UNKNOWN
  12. ABILIFY [Concomitant]
     Indication: DEPRESSION
     Dosage: UNKNOWN
  13. ASPIRIN [Concomitant]
     Indication: CORONARY ARTERY DISEASE
     Dosage: UNKNOWN
  14. GRALISE ER [Concomitant]
     Indication: NEURALGIA
     Dosage: UNKNOWN
  15. VYVANSE [Concomitant]
     Indication: ATTENTION DEFICIT/HYPERACTIVITY DISORDER
     Dosage: UNKNOWN
  16. AMPHETAMINE SALTS [Concomitant]
     Indication: ATTENTION DEFICIT/HYPERACTIVITY DISORDER
     Dosage: UNKNOWN
  17. ANTACID [Concomitant]
     Indication: GASTROOESOPHAGEAL REFLUX DISEASE
  18. NAPROXEN [Concomitant]
     Indication: SWELLING
     Dosage: UNKNOWN
  19. NAPROXEN [Concomitant]
     Indication: PAIN

REACTIONS (4)
  - Aggression [Not Recovered/Not Resolved]
  - Irritability [Not Recovered/Not Resolved]
  - Blood testosterone increased [Unknown]
  - Erectile dysfunction [Not Recovered/Not Resolved]
